FAERS Safety Report 4701282-9 (Version None)
Quarter: 2005Q2

REPORT INFORMATION
  Report Type: 
  Country: None (occurrence: None)
  Receive Date: 20050628
  Receipt Date: 20050617
  Transmission Date: 20051028
  Serious: Yes (Hospitalization, Disabling, Other)
  Sender: FDA-Public Use
  Company Number: US-MERCK-0506USA02997

PATIENT
  Age: 71 Year
  Sex: Male
  Weight: 84 kg

DRUGS (6)
  1. VIOXX [Suspect]
     Indication: GOUTY ARTHRITIS
     Route: 048
     Dates: start: 20030801, end: 20040901
  2. TOPROL-XL [Concomitant]
     Route: 065
  3. COREG [Concomitant]
     Route: 065
     Dates: start: 19950101, end: 20040101
  4. ASPIRIN [Concomitant]
     Route: 048
     Dates: start: 19950101
  5. ZOCOR [Concomitant]
     Route: 065
     Dates: start: 19950101
  6. LIPITOR [Concomitant]
     Route: 065
     Dates: start: 19950101

REACTIONS (21)
  - AORTIC VALVE SCLEROSIS [None]
  - BLOOD CREATININE INCREASED [None]
  - BLOOD PRESSURE INCREASED [None]
  - BLOOD UREA INCREASED [None]
  - CAROTID ARTERY OCCLUSION [None]
  - CAROTID ARTERY THROMBOSIS [None]
  - CEREBRAL ARTERY OCCLUSION [None]
  - CEREBRAL INFARCTION [None]
  - CEREBROVASCULAR ACCIDENT [None]
  - COUGH [None]
  - DILATATION ATRIAL [None]
  - INTERVERTEBRAL DISC PROTRUSION [None]
  - LACUNAR INFARCTION [None]
  - MITRAL VALVE INCOMPETENCE [None]
  - NERVE ROOT COMPRESSION [None]
  - NERVE ROOT LESION [None]
  - PULMONARY MASS [None]
  - PULMONARY VALVE INCOMPETENCE [None]
  - SPINAL CORD COMPRESSION [None]
  - TRICUSPID VALVE INCOMPETENCE [None]
  - VENTRICULAR HYPOKINESIA [None]
